FAERS Safety Report 5145006-2 (Version None)
Quarter: 2006Q4

REPORT INFORMATION
  Report Type: 
  Country: None (occurrence: None)
  Receive Date: 20061031
  Receipt Date: 20061020
  Transmission Date: 20070319
  Serious: Yes (Other)
  Sender: FDA-Public Use
  Company Number: VISP-PR-0610S-0695

PATIENT
  Age: 46 Year
  Sex: Female
  Weight: 72.5755 kg

DRUGS (2)
  1. VISIPAQUE [Suspect]
     Indication: NODULE
     Dosage: 70 ML, SINGLE DOSE, I.V.
     Route: 042
     Dates: start: 20060910, end: 20061010
  2. SODIUM CHLORIDE [Concomitant]

REACTIONS (2)
  - ERYTHEMA [None]
  - THROMBOSIS [None]
